FAERS Safety Report 8822263 (Version 2)
Quarter: 2013Q1

REPORT INFORMATION
  Report Type: Spontaneous
  Country: US (occurrence: US)
  Receive Date: 20121003
  Receipt Date: 20130110
  Transmission Date: 20140127
  Serious: No
  Sender: FDA-Public Use
  Company Number: US-009507513-1209USA006419

PATIENT
  Age: 58 Year
  Sex: Female

DRUGS (1)
  1. NASONEX [Suspect]
     Indication: HYPERSENSITIVITY
     Dosage: 1 SPRAY, BID
     Route: 045

REACTIONS (2)
  - Nasal disorder [Not Recovered/Not Resolved]
  - Product odour abnormal [Unknown]
